FAERS Safety Report 7601492-7 (Version None)
Quarter: 2011Q2

REPORT INFORMATION
  Report Type: 
  Country: None (occurrence: None)
  Receive Date: 20110629
  Receipt Date: 20110620
  Transmission Date: 20111010
  Serious: Yes (Hospitalization)
  Sender: FDA-Public Use
  Company Number: 2011-00663

PATIENT
  Age: 81 Year
  Sex: Female
  Weight: 72.5755 kg

DRUGS (7)
  1. GLUCOSAMINE AND CHODROITIN [Concomitant]
  2. GEMFIBROZIL [Concomitant]
  3. SERTRALINE HYDROCHLORIDE [Concomitant]
  4. ALPRAZOLAM [Concomitant]
  5. XOYCODONE-APAP [Concomitant]
  6. SIMVASTATIN [Suspect]
     Indication: BLOOD CHOLESTEROL INCREASED
     Dosage: 40 MG (40 MG, DAILY), ORAL
     Route: 048
     Dates: start: 20110523, end: 20110501
  7. SUCRALFATE [Concomitant]

REACTIONS (7)
  - NIGHTMARE [None]
  - ABDOMINAL PAIN UPPER [None]
  - INSOMNIA [None]
  - SCREAMING [None]
  - CRYING [None]
  - VOMITING [None]
  - FATIGUE [None]
